FAERS Safety Report 6016362-8 (Version None)
Quarter: 2008Q4

REPORT INFORMATION
  Report Type: 
  Country: None (occurrence: None)
  Receive Date: 20081222
  Receipt Date: 20081217
  Transmission Date: 20090506
  Serious: Yes (Death, Hospitalization)
  Sender: FDA-Public Use
  Company Number: DE-ASTRAZENECA-2008AC03183

PATIENT
  Age: 65 Year
  Sex: Male

DRUGS (2)
  1. ATENOLOL [Suspect]
     Indication: HYPERTENSION
     Dosage: STARTING DOSE 50MG, MAXIMUM DOSE 100MG
     Route: 048
  2. ALISKIREN [Suspect]
     Indication: HYPERTENSION
     Dosage: STARTING DOSE 150MG, MAXIMUM DOSE 300MG
     Route: 048

REACTIONS (5)
  - CEREBRAL HAEMORRHAGE [None]
  - CEREBRAL INFARCTION [None]
  - ISCHAEMIC STROKE [None]
  - RESPIRATORY FAILURE [None]
  - SUPRAVENTRICULAR TACHYCARDIA [None]
